FAERS Safety Report 9025893 (Version 1)
Quarter: 2013Q1

REPORT INFORMATION
  Report Type: Spontaneous
  Country: US (occurrence: None)
  Receive Date: 20130104
  Receipt Date: 20130104
  Transmission Date: 20140127
  Serious: Yes (Death, Hospitalization)
  Sender: FDA-Public Use
  Company Number: VAL_01200_2012

PATIENT
  Sex: Male
  Weight: 74.39 kg

DRUGS (2)
  1. BUMEX [Suspect]
     Indication: CARDIAC FAILURE
     Dosage: (ADJUSTS PER DAILY WEIGHT))
     Dates: start: 2010
  2. REVATIO [Suspect]
     Indication: PULMONARY HYPERTENSION
     Route: 048
     Dates: start: 2010, end: 2012

REACTIONS (7)
  - Pulmonary hypertension [None]
  - Orthostatic hypotension [None]
  - Weight decreased [None]
  - Dehydration [None]
  - Nausea [None]
  - Dizziness [None]
  - Overdose [None]
